FAERS Safety Report 17430111 (Version 2)
Quarter: 2020Q4

REPORT INFORMATION
  Report Type: Spontaneous
  Country: US (occurrence: US)
  Receive Date: 20200218
  Receipt Date: 20201028
  Transmission Date: 20210113
  Serious: No
  Sender: FDA-Public Use
  Company Number: US-PFIZER INC-2020069099

PATIENT
  Age: 69 Year
  Sex: Male

DRUGS (2)
  1. VENLAFAXINE XR [Concomitant]
     Active Substance: VENLAFAXINE HYDROCHLORIDE
     Dosage: 75 MG, 1X/DAY
  2. LYRICA [Suspect]
     Active Substance: PREGABALIN
     Indication: NEURALGIA
     Dosage: 150 MG, 2X/DAY

REACTIONS (6)
  - Hypoaesthesia [Unknown]
  - Memory impairment [Unknown]
  - Illness [Unknown]
  - Feeling cold [Unknown]
  - Pain [Unknown]
  - Pain in extremity [Unknown]
